FAERS Safety Report 22049513 (Version 1)
Quarter: 2023Q1

REPORT INFORMATION
  Report Type: Report from Study
  Country: US (occurrence: US)
  Receive Date: 20230301
  Receipt Date: 20230301
  Transmission Date: 20230418
  Serious: Yes (Hospitalization, Other)
  Sender: FDA-Public Use
  Company Number: US-AMGEN-USASL2023032497

PATIENT
  Age: 76 Year
  Sex: Female

DRUGS (3)
  1. REPATHA [Suspect]
     Active Substance: EVOLOCUMAB
     Indication: Blood cholesterol abnormal
     Dosage: 140 MILLIGRAM, Q2WK
     Route: 065
     Dates: start: 20230104
  2. PEPCID [Concomitant]
     Active Substance: FAMOTIDINE
  3. ASPIRIN [Concomitant]
     Active Substance: ASPIRIN

REACTIONS (5)
  - Gastrooesophageal reflux disease [Unknown]
  - Syncope [Unknown]
  - Myocardial infarction [Unknown]
  - Influenza like illness [Not Recovered/Not Resolved]
  - Oral herpes [Unknown]

NARRATIVE: CASE EVENT DATE: 20230101
